FAERS Safety Report 10396096 (Version 3)
Quarter: 2014Q3

REPORT INFORMATION
  Report Type: Spontaneous
  Country: US (occurrence: US)
  Receive Date: 20140820
  Receipt Date: 20140922
  Transmission Date: 20150326
  Serious: Yes (Hospitalization)
  Sender: FDA-Public Use
  Company Number: US-ACTELION-A-NJ2014-103666

PATIENT
  Age: 21 Year
  Sex: Male

DRUGS (5)
  1. OPSUMIT [Suspect]
     Active Substance: MACITENTAN
     Indication: PULMONARY ARTERIAL HYPERTENSION
     Dosage: 10 MG, UNK
     Route: 048
     Dates: start: 201312
  2. LOSARTAN [Concomitant]
     Active Substance: LOSARTAN
     Dosage: 100 UNK, QD
  3. CLONIDINE. [Concomitant]
     Active Substance: CLONIDINE
     Dosage: UNK, BID
  4. SILDENAFIL [Concomitant]
     Active Substance: SILDENAFIL
  5. NIFEDIPINE. [Concomitant]
     Active Substance: NIFEDIPINE
     Dosage: 60 UNK, QD

REACTIONS (1)
  - Road traffic accident [Unknown]

NARRATIVE: CASE EVENT DATE: 20140807
